FAERS Safety Report 5521971-6 (Version None)
Quarter: 2007Q4

REPORT INFORMATION
  Report Type: 
  Country: None (occurrence: None)
  Receive Date: 20071120
  Receipt Date: 20070627
  Transmission Date: 20080405
  Serious: No
  Sender: FDA-Public Use
  Company Number: US-BRISTOL-MYERS SQUIBB COMPANY-13828249

PATIENT
  Sex: Male

DRUGS (5)
  1. AVALIDE [Suspect]
     Dates: start: 20060101
  2. ACTOS [Concomitant]
  3. MOBIC [Concomitant]
  4. ASPIRIN [Concomitant]
  5. FLOMAX [Concomitant]

REACTIONS (1)
  - PHOTOSENSITIVITY REACTION [None]
